FAERS Safety Report 22533716 (Version 1)
Quarter: 2023Q2

REPORT INFORMATION
  Report Type: Spontaneous
  Country: US (occurrence: None)
  Receive Date: 20230608
  Receipt Date: 20230608
  Transmission Date: 20230721
  Serious: Yes (Other)
  Sender: FDA-Public Use
  Company Number: US-ROCHE-3361551

PATIENT
  Age: 73 Year
  Sex: Female
  Weight: 81.72 kg

DRUGS (1)
  1. ESBRIET [Suspect]
     Active Substance: PIRFENIDONE
     Indication: Idiopathic pulmonary fibrosis
     Dosage: SHE TAKES 801 MG OF ESBRIET IN THE MORNING AND AT LUNCHTIME, THEN TAKES 2 267 MG TABLETS OF ESBRIET
     Route: 048
     Dates: start: 2018

REACTIONS (5)
  - Off label use [Unknown]
  - Open fracture [Recovered/Resolved]
  - Sciatic nerve neuropathy [Recovering/Resolving]
  - Osteopenia [Not Recovered/Not Resolved]
  - Osteoporosis [Recovered/Resolved]

NARRATIVE: CASE EVENT DATE: 20230201
